FAERS Safety Report 4717578-0 (Version None)
Quarter: 2005Q3

REPORT INFORMATION
  Report Type: 
  Country: None (occurrence: None)
  Receive Date: 20050712
  Receipt Date: 20050606
  Transmission Date: 20060218
  Serious: No
  Sender: FDA-Public Use
  Company Number: 2005S1000110

PATIENT
  Age: 50 Year
  Sex: Male
  Weight: 152.3 kg

DRUGS (8)
  1. CUBICIN [Suspect]
     Indication: CELLULITIS
     Dosage: 6 MG/KG;Q24H;IV
     Route: 042
     Dates: start: 20050501, end: 20050602
  2. CLINDAMYCIN [Suspect]
     Indication: CELLULITIS
     Dosage: 450 MG;Q8H;PO
     Route: 048
     Dates: start: 20050501, end: 20050602
  3. CLINDAMYCIN [Concomitant]
  4. IBUPROFEN [Concomitant]
  5. LASIX [Concomitant]
  6. AVAPRO [Concomitant]
  7. ASPIRIN [Concomitant]
  8. MULTI-VITAMIN [Concomitant]

REACTIONS (3)
  - ERYTHEMA [None]
  - PRURITUS GENERALISED [None]
  - RASH MACULO-PAPULAR [None]
